FAERS Safety Report 4816920-X (Version None)
Quarter: 2005Q4

REPORT INFORMATION
  Report Type: 
  Country: None (occurrence: None)
  Receive Date: 20051101
  Receipt Date: 20050414
  Transmission Date: 20060501
  Serious: Yes (Other)
  Sender: FDA-Public Use
  Company Number: US-MERCK-0504USA02817

PATIENT
  Age: 52 Year
  Sex: Male
  Weight: 97 kg

DRUGS (5)
  1. VIOXX [Suspect]
     Indication: OSTEOARTHRITIS
     Route: 048
     Dates: start: 20020201, end: 20040426
  2. VIOXX [Suspect]
     Indication: GOUT
     Route: 048
     Dates: start: 20020201, end: 20040426
  3. DIOVAN HCT [Concomitant]
     Indication: HYPERTENSION
     Route: 048
     Dates: start: 19960101, end: 20040426
  4. KLOR-CON [Concomitant]
     Indication: MINERAL SUPPLEMENTATION
     Route: 048
  5. ACIPHEX [Concomitant]
     Indication: DYSPEPSIA
     Route: 048

REACTIONS (1)
  - MYOCARDIAL INFARCTION [None]
